FAERS Safety Report 4824471-1 (Version None)
Quarter: 2005Q4

REPORT INFORMATION
  Report Type: 
  Country: None (occurrence: None)
  Receive Date: 20051108
  Receipt Date: 20051020
  Transmission Date: 20060501
  Serious: Yes (Other)
  Sender: FDA-Public Use
  Company Number: JP_051007970

PATIENT
  Age: 69 Year
  Sex: Male

DRUGS (1)
  1. GEMZAR [Suspect]
     Indication: NON-SMALL CELL LUNG CANCER
     Dosage: 1000 MG/M2 OTHER
     Route: 050

REACTIONS (2)
  - IIIRD NERVE PARALYSIS [None]
  - METASTASES TO CENTRAL NERVOUS SYSTEM [None]
